FAERS Safety Report 10645451 (Version 1)
Quarter: 2014Q4

REPORT INFORMATION
  Report Type: Spontaneous
  Country: US (occurrence: None)
  Receive Date: 20141210
  Receipt Date: 20141210
  Transmission Date: 20150529
  Serious: Yes (Hospitalization)
  Sender: FDA-Public Use
  Company Number: None

PATIENT
  Age: 65 Year
  Sex: Male
  Weight: 113 kg

DRUGS (1)
  1. YERVOY [Suspect]
     Active Substance: IPILIMUMAB
     Indication: METASTATIC MALIGNANT MELANOMA
     Dosage: 1100 MG, Q21 DAYS
     Route: 042
     Dates: start: 20140812, end: 20141016

REACTIONS (6)
  - Immune system disorder [None]
  - Liver disorder [None]
  - Liver function test abnormal [None]
  - Abdominal discomfort [None]
  - Abdominal pain upper [None]
  - Jaundice [None]

NARRATIVE: CASE EVENT DATE: 20141031
